FAERS Safety Report 4975398-6 (Version None)
Quarter: 2006Q2

REPORT INFORMATION
  Report Type: 
  Country: None (occurrence: None)
  Receive Date: 20060418
  Receipt Date: 20050923
  Transmission Date: 20061013
  Serious: Yes (Life-Threatening, Hospitalization, Other)
  Sender: FDA-Public Use
  Company Number: US-MERCK-0509USA03948

PATIENT
  Sex: Female
  Weight: 81 kg

DRUGS (12)
  1. VIOXX [Suspect]
     Indication: ARTHRITIS
     Route: 048
     Dates: start: 20030501, end: 20050724
  2. DIOVAN HCT [Concomitant]
     Indication: HYPERTENSION
     Route: 065
  3. DIOVAN [Concomitant]
     Indication: HYPERTENSION
     Route: 065
     Dates: start: 20020101
  4. NORVASC [Concomitant]
     Indication: HYPERTENSION
     Route: 065
     Dates: start: 20030101
  5. AVANDAMET [Concomitant]
     Route: 065
  6. AVANDIA [Concomitant]
     Route: 065
  7. OMEPRAZOLE [Concomitant]
     Route: 065
  8. ATENOLOL [Concomitant]
     Indication: HYPERTENSION
     Route: 065
  9. LIPITOR [Concomitant]
     Indication: BLOOD CHOLESTEROL INCREASED
     Route: 065
     Dates: start: 19980101
  10. ECOTRIN [Concomitant]
     Indication: PROPHYLAXIS
     Route: 065
     Dates: start: 19920101
  11. KLONOPIN [Concomitant]
     Indication: TREMOR
     Route: 065
     Dates: start: 20000101, end: 20050101
  12. VIOXX [Suspect]
     Route: 048
     Dates: start: 20030501, end: 20050724

REACTIONS (9)
  - ANXIETY [None]
  - CARDIAC DISORDER [None]
  - CORONARY ARTERY THROMBOSIS [None]
  - INSOMNIA [None]
  - INTRACARDIAC THROMBUS [None]
  - POLYTRAUMATISM [None]
  - PULMONARY EMBOLISM [None]
  - PULMONARY THROMBOSIS [None]
  - THROMBOSIS [None]
